FAERS Safety Report 22181484 (Version 1)
Quarter: 2023Q2

REPORT INFORMATION
  Report Type: Spontaneous
  Country: US (occurrence: US)
  Receive Date: 20230406
  Receipt Date: 20230406
  Transmission Date: 20230721
  Serious: No
  Sender: FDA-Public Use
  Company Number: US-AMRYT PHARMACEUTICALS DAC-AEGR006199

PATIENT
  Sex: Female
  Weight: 88.435 kg

DRUGS (1)
  1. MYCAPSSA [Suspect]
     Active Substance: OCTREOTIDE
     Indication: Acromegaly
     Dosage: 40 MILLIGRAM, BID
     Route: 048

REACTIONS (4)
  - Adverse drug reaction [Unknown]
  - Foreign body in throat [Unknown]
  - Throat irritation [Unknown]
  - Product size issue [Unknown]
